FAERS Safety Report 8087661-3 (Version None)
Quarter: 2012Q1

REPORT INFORMATION
  Report Type: 
  Country: None (occurrence: None)
  Receive Date: 20120128
  Receipt Date: 20110407
  Transmission Date: 20120608
  Serious: No
  Sender: FDA-Public Use
  Company Number: US-ABBOTT-11P-163-0717915-00

PATIENT
  Sex: Female
  Weight: 74.456 kg

DRUGS (4)
  1. HUMIRA [Suspect]
     Dosage: EVERY OTHER THURSDAY
     Route: 058
     Dates: start: 20110401
  2. ASACOL [Concomitant]
     Indication: CROHN'S DISEASE
  3. HUMIRA [Suspect]
     Dosage: 2ND LOADING DOSE, ONCE
     Route: 058
     Dates: start: 20110301, end: 20110301
  4. HUMIRA [Suspect]
     Indication: CROHN'S DISEASE
     Dosage: 1ST LOADING DOSE, ONCE
     Route: 058
     Dates: start: 20110314, end: 20110314

REACTIONS (5)
  - HYPOPHAGIA [None]
  - FLATULENCE [None]
  - CONSTIPATION [None]
  - ABDOMINAL PAIN [None]
  - NAUSEA [None]
